FAERS Safety Report 18881352 (Version 3)
Quarter: 2021Q2

REPORT INFORMATION
  Report Type: Report from Study
  Country: US (occurrence: US)
  Receive Date: 20210211
  Receipt Date: 20210614
  Transmission Date: 20210717
  Serious: Yes (Other)
  Sender: FDA-Public Use
  Company Number: NVSC2021US029267

PATIENT
  Age: 67 Year
  Sex: Male

DRUGS (1)
  1. ENTRESTO [Suspect]
     Active Substance: SACUBITRIL\VALSARTAN
     Indication: CARDIAC FAILURE
     Dosage: 50 MG (24/26), BID
     Route: 048
     Dates: start: 2019

REACTIONS (2)
  - Hypovitaminosis [Unknown]
  - Leukaemia [Unknown]

NARRATIVE: CASE EVENT DATE: 2019
